FAERS Safety Report 5981421-2 (Version None)
Quarter: 2008Q4

REPORT INFORMATION
  Report Type: 
  Country: None (occurrence: None)
  Receive Date: 20081205
  Receipt Date: 20081125
  Transmission Date: 20090506
  Serious: Yes (Hospitalization, Other)
  Sender: FDA-Public Use
  Company Number: US-BAXTER-2008BH009482

PATIENT
  Age: 64 Year
  Sex: Female

DRUGS (3)
  1. DIANEAL [Suspect]
     Indication: RENAL FAILURE CHRONIC
     Route: 033
     Dates: start: 20070419
  2. DIANEAL [Suspect]
     Indication: RENAL FAILURE CHRONIC
     Route: 033
     Dates: start: 20070419
  3. DIANEAL [Suspect]
     Indication: DIABETES MELLITUS
     Route: 033
     Dates: start: 20070419

REACTIONS (2)
  - GANGRENE [None]
  - SKIN ULCER [None]
